FAERS Safety Report 8433245-4 (Version None)
Quarter: 2012Q2

REPORT INFORMATION
  Report Type: 
  Country: None (occurrence: None)
  Receive Date: 20120323
  Receipt Date: 20110916
  Transmission Date: 20120825
  Serious: Yes (Disabling, Other)
  Sender: FDA-Public Use
  Company Number: 163-21880-11070651

PATIENT
  Age: 74 Year
  Sex: Female

DRUGS (7)
  1. REVLIMID [Suspect]
     Indication: MULTIPLE MYELOMA
     Dosage: 25 MG, QD X 21 DAYS, 7 DAYS OFF, PO : 25 MG, 1 IN 1 D, PO
     Route: 048
     Dates: start: 20101201, end: 20110517
  2. REVLIMID [Suspect]
     Indication: MULTIPLE MYELOMA
     Dosage: 25 MG, QD X 21 DAYS, 7 DAYS OFF, PO : 25 MG, 1 IN 1 D, PO
     Route: 048
     Dates: start: 20110614
  3. LASIX [Concomitant]
  4. ZOMETA [Concomitant]
  5. ZANTAC [Concomitant]
  6. ARANESP [Concomitant]
  7. ATENOLOL [Concomitant]

REACTIONS (3)
  - DIARRHOEA [None]
  - ASTHENIA [None]
  - PANCYTOPENIA [None]
